FAERS Safety Report 13063578 (Version 1)
Quarter: 2016Q4

REPORT INFORMATION
  Report Type: Spontaneous
  Country: US (occurrence: US)
  Receive Date: 20161227
  Receipt Date: 20161227
  Transmission Date: 20170207
  Serious: No
  Sender: FDA-Public Use
  Company Number: US-NOVEN PHARMACEUTICALS, INC.-US2016002319

PATIENT

DRUGS (2)
  1. MINIVELLE [Suspect]
     Active Substance: ESTRADIOL
     Indication: HOT FLUSH
     Dosage: UNK, UNKNOWN
     Route: 062
     Dates: end: 201603
  2. ESTRADIOL. [Suspect]
     Active Substance: ESTRADIOL
     Indication: HOT FLUSH
     Dosage: 0.05 MG, UNKNOWN
     Route: 062
     Dates: start: 201603

REACTIONS (10)
  - Abdominal discomfort [Unknown]
  - Nasal congestion [Unknown]
  - Headache [Unknown]
  - Palpitations [Unknown]
  - Bone disorder [Unknown]
  - Rhinorrhoea [Unknown]
  - Fall [Unknown]
  - Arthralgia [Unknown]
  - Feeling abnormal [Unknown]
  - Muscle disorder [Unknown]
